FAERS Safety Report 6574827-4 (Version None)
Quarter: 2010Q1

REPORT INFORMATION
  Report Type: 
  Country: None (occurrence: None)
  Receive Date: 20100209
  Receipt Date: 20100125
  Transmission Date: 20100710
  Serious: Yes (Other)
  Sender: FDA-Public Use
  Company Number: PHHY2010BR04240

PATIENT
  Sex: Male

DRUGS (1)
  1. DIOVAN HCT [Suspect]
     Dosage: 80/12.5 MG

REACTIONS (3)
  - ARTERIAL OCCLUSIVE DISEASE [None]
  - CONCOMITANT DISEASE AGGRAVATED [None]
  - PAIN IN EXTREMITY [None]
